FAERS Safety Report 21688495 (Version 1)
Quarter: 2022Q4

REPORT INFORMATION
  Report Type: Spontaneous
  Country: US (occurrence: None)
  Receive Date: 20221205
  Receipt Date: 20221205
  Transmission Date: 20230112
  Serious: Yes (Death)
  Sender: FDA-Public Use
  Company Number: None

PATIENT
  Age: 59 Year
  Sex: Female

DRUGS (1)
  1. IBRANCE [Suspect]
     Active Substance: PALBOCICLIB
     Indication: Neoplasm malignant
     Dosage: OTHER FREQUENCY : 21 DAYS ON 7 DAYS ;?
     Route: 048
     Dates: start: 20221017

REACTIONS (1)
  - Death [None]

NARRATIVE: CASE EVENT DATE: 20221104
